FAERS Safety Report 8142746-8 (Version None)
Quarter: 2012Q1

REPORT INFORMATION
  Report Type: 
  Country: None (occurrence: None)
  Receive Date: 20120216
  Receipt Date: 20120207
  Transmission Date: 20120608
  Serious: Yes (Other)
  Sender: FDA-Public Use
  Company Number: US-ASTRAZENECA-2012SE08580

PATIENT
  Age: 44 Year
  Sex: Male

DRUGS (3)
  1. TRAZODONE HYDROCHLORIDE [Concomitant]
     Route: 048
  2. SEROQUEL [Suspect]
     Route: 048
  3. PROZAC [Concomitant]
     Route: 048

REACTIONS (19)
  - DRUG DOSE OMISSION [None]
  - FEELINGS OF WORTHLESSNESS [None]
  - ASTHENIA [None]
  - ELEVATED MOOD [None]
  - TACHYPHRENIA [None]
  - DECREASED INTEREST [None]
  - FEELING GUILTY [None]
  - INCREASED APPETITE [None]
  - PERFORMANCE FEAR [None]
  - DEPRESSION [None]
  - SUBSTANCE ABUSE [None]
  - PARANOIA [None]
  - ANXIETY [None]
  - DEPRESSED MOOD [None]
  - SUICIDAL IDEATION [None]
  - MORBID THOUGHTS [None]
  - INSOMNIA [None]
  - WEIGHT DECREASED [None]
  - MAJOR DEPRESSION [None]
